FAERS Safety Report 10016747 (Version 1)
Quarter: 2014Q1

REPORT INFORMATION
  Report Type: Spontaneous
  Country: US (occurrence: US)
  Receive Date: 20140318
  Receipt Date: 20140318
  Transmission Date: 20141002
  Serious: Yes (Hospitalization, Other)
  Sender: FDA-Public Use
  Company Number: PHHY2014US028516

PATIENT
  Age: 80 Year
  Sex: Female

DRUGS (2)
  1. ROPINIROLE [Suspect]
     Dosage: 0.5 MG, QD, 0.25MG TO 0.5 MG DAILY
  2. KAVA [Interacting]
     Indication: SLEEP DISORDER

REACTIONS (3)
  - Hallucination, visual [Unknown]
  - Delusion [Unknown]
  - Drug interaction [Unknown]
